FAERS Safety Report 16251000 (Version 1)
Quarter: 2019Q2

REPORT INFORMATION
  Report Type: Spontaneous
  Country: US (occurrence: US)
  Receive Date: 20190429
  Receipt Date: 20190429
  Transmission Date: 20190711
  Serious: No
  Sender: FDA-Public Use
  Company Number: US-PFIZER INC-2019176592

PATIENT
  Age: 70 Year

DRUGS (4)
  1. CEPHALEXIN [CEFALEXIN] [Suspect]
     Active Substance: CEPHALEXIN
     Dosage: UNK
  2. CLINDAMYCIN HCL [Suspect]
     Active Substance: CLINDAMYCIN HYDROCHLORIDE
     Dosage: UNK
  3. ELAVIL [ALLOPURINOL] [Suspect]
     Active Substance: ALLOPURINOL
     Dosage: UNK
  4. SEROQUEL [Suspect]
     Active Substance: QUETIAPINE FUMARATE
     Dosage: UNK

REACTIONS (1)
  - Drug hypersensitivity [Unknown]
